FAERS Safety Report 18335510 (Version 1)
Quarter: 2020Q4

REPORT INFORMATION
  Report Type: Spontaneous
  Country: US (occurrence: US)
  Receive Date: 20201001
  Receipt Date: 20201001
  Transmission Date: 20210113
  Serious: No
  Sender: FDA-Public Use
  Company Number: US-VERTEX PHARMACEUTICALS-2020-019218

PATIENT
  Age: 12 Year
  Sex: Female
  Weight: 43 kg

DRUGS (6)
  1. VITAMIN A [RETINOL] [Concomitant]
     Active Substance: RETINOL
  2. VITAMIN E [Concomitant]
     Active Substance: .ALPHA.-TOCOPHEROL
     Dosage: 1000 INTERNATIONAL UNIT
  3. AZITHROMYCIN ANHYDROUS. [Concomitant]
     Active Substance: AZITHROMYCIN ANHYDROUS
     Dosage: 250 MILLIGRAM
  4. CREON [Concomitant]
     Active Substance: PANCRELIPASE AMYLASE\PANCRELIPASE LIPASE\PANCRELIPASE PROTEASE
  5. VITAMIN K [MENADIONE] [Concomitant]
     Active Substance: MENADIONE
     Dosage: 100 MICROGRAM
  6. TRIKAFTA [Suspect]
     Active Substance: ELEXACAFTOR\IVACAFTOR\TEZACAFTOR
     Indication: CYSTIC FIBROSIS
     Dosage: 2 TABS (100MG ELEXACAFTOR/50MG TEZACAFTOR/75MG IVACAFTOR) AM AND 150MG IVACAFTOR PM
     Route: 048
     Dates: start: 20200919

REACTIONS (1)
  - Headache [Unknown]

NARRATIVE: CASE EVENT DATE: 20200921
